FAERS Safety Report 12932653 (Version 2)
Quarter: 2016Q4

REPORT INFORMATION
  Report Type: Spontaneous
  Country: JP (occurrence: JP)
  Receive Date: 20161111
  Receipt Date: 20161118
  Transmission Date: 20170207
  Serious: Yes (Death, Hospitalization, Other)
  Sender: FDA-Public Use
  Company Number: PHHY2015JP129567

PATIENT
  Age: 44 Year
  Sex: Male

DRUGS (7)
  1. IFOSFAMIDE. [Concomitant]
     Active Substance: IFOSFAMIDE
     Indication: PRODUCT USED FOR UNKNOWN INDICATION
     Route: 065
  2. VOTRIENT [Suspect]
     Active Substance: PAZOPANIB HYDROCHLORIDE
     Dosage: 400 MG, QD
     Route: 048
     Dates: start: 201511, end: 201602
  3. VOTRIENT [Suspect]
     Active Substance: PAZOPANIB HYDROCHLORIDE
     Indication: PERIPHERAL NERVE SHEATH TUMOUR MALIGNANT
     Dosage: 800 MG, QD
     Route: 048
     Dates: start: 201505, end: 201507
  4. VOTRIENT [Suspect]
     Active Substance: PAZOPANIB HYDROCHLORIDE
     Dosage: 600 MG, QD
     Route: 048
     Dates: start: 201507, end: 20150908
  5. GEMCITABINE [Concomitant]
     Active Substance: GEMCITABINE\GEMCITABINE HYDROCHLORIDE
     Indication: PRODUCT USED FOR UNKNOWN INDICATION
     Route: 065
  6. VOTRIENT [Suspect]
     Active Substance: PAZOPANIB HYDROCHLORIDE
     Dosage: 600 MG, QD
     Route: 048
     Dates: start: 20150929, end: 20151027
  7. VOTRIENT [Suspect]
     Active Substance: PAZOPANIB HYDROCHLORIDE
     Dosage: 200 MG, QD
     Route: 048
     Dates: start: 20160223, end: 20160408

REACTIONS (9)
  - Metastases to lung [Fatal]
  - Dyspnoea [Fatal]
  - Pneumothorax [Recovered/Resolved]
  - Traumatic haemothorax [Unknown]
  - Hypertension [Recovered/Resolved]
  - Malignant neoplasm progression [Fatal]
  - Hypertension [Recovered/Resolved]
  - Pneumothorax [Recovered/Resolved]
  - Pneumothorax [Recovered/Resolved]

NARRATIVE: CASE EVENT DATE: 201507
